FAERS Safety Report 8302368-2 (Version None)
Quarter: 2012Q2

REPORT INFORMATION
  Report Type: 
  Country: None (occurrence: None)
  Receive Date: 20120420
  Receipt Date: 20120413
  Transmission Date: 20120825
  Serious: Yes (Death)
  Sender: FDA-Public Use
  Company Number: DE-UCBSA-054649

PATIENT
  Age: 81 Year
  Sex: Male

DRUGS (4)
  1. AZILECT [Concomitant]
  2. ARICEPT [Concomitant]
  3. NEUPRO [Suspect]
     Dates: start: 20090707
  4. MADOPAR [Concomitant]

REACTIONS (1)
  - DEATH [None]
